FAERS Safety Report 8872709 (Version 1)
Quarter: 2012Q4

REPORT INFORMATION
  Report Type: Report from Study
  Country: DE (occurrence: DE)
  Receive Date: 20121029
  Receipt Date: 20121029
  Transmission Date: 20130627
  Serious: Yes (Other)
  Sender: FDA-Public Use
  Company Number: DE-VERTEX PHARMACEUTICAL INC.-2012-023724

PATIENT
  Sex: Male

DRUGS (3)
  1. INCIVO [Suspect]
     Indication: HEPATITIS C
     Dosage: Dosage Form: Tablet
     Route: 048
  2. INTERFERON [Suspect]
     Indication: HEPATITIS C
     Dosage: UNK
     Route: 050
  3. RIBAVIRIN [Suspect]
     Indication: HEPATITIS C
     Dosage: UNK
     Route: 048

REACTIONS (6)
  - Febrile convulsion [Unknown]
  - Fatigue [Unknown]
  - Constipation [Unknown]
  - Influenza like illness [Unknown]
  - Diarrhoea [Unknown]
  - Nausea [Unknown]
